FAERS Safety Report 4635099-0 (Version None)
Quarter: 2005Q2

REPORT INFORMATION
  Report Type: 
  Country: None (occurrence: None)
  Receive Date: 20050414
  Receipt Date: 20050407
  Transmission Date: 20051028
  Serious: Yes (Hospitalization)
  Sender: FDA-Public Use
  Company Number: PHEH2005US04072

PATIENT
  Age: 75 Year
  Sex: Male

DRUGS (7)
  1. STARLIX [Suspect]
     Indication: DIABETES MELLITUS NON-INSULIN-DEPENDENT
     Dosage: 120 MG, BID
     Route: 048
     Dates: start: 20050301
  2. PINDOLOL [Concomitant]
  3. PENTOX [Concomitant]
  4. UNIPHYL [Concomitant]
  5. ALTACE [Concomitant]
  6. PRAVACHOL [Concomitant]
  7. ZETIA [Concomitant]

REACTIONS (2)
  - CHEST DISCOMFORT [None]
  - MYOCARDIAL INFARCTION [None]
